FAERS Safety Report 8680868 (Version 2)
Quarter: 2012Q4

REPORT INFORMATION
  Report Type: 
  Country: DE (occurrence: DE)
  Receive Date: 20120724
  Receipt Date: 20120913
  Transmission Date: 20130627
  Serious: Yes (Other)
  Sender: FDA-Public Use
  Company Number: DE-UCBSA-057041

PATIENT
  Sex: Male
  Weight: 110 kg

DRUGS (12)
  1. NEUPRO [Suspect]
     Indication: PARKINSON^S DISEASE
     Route: 062
     Dates: start: 2007
  2. NEUPRO [Suspect]
     Indication: PARKINSON^S DISEASE
     Dosage: 8-10MG/24H
     Route: 062
  3. OMEPRAZOLE [Concomitant]
  4. CITALOPRAM [Concomitant]
     Indication: DEPRESSION
  5. AMANTADIN [Concomitant]
     Indication: PARKINSON^S DISEASE
  6. STALEVO [Concomitant]
     Indication: PARKINSON^S DISEASE
     Dosage: 100/25/200 MG-3 AT 08:00 HRS AND 3 AT 14:00 HRS
  7. LEVODOP RETARD [Concomitant]
     Dosage: 200/50 MG
  8. METOPROLOL SUCCINATE [Concomitant]
  9. ASS 100 [Concomitant]
  10. BROMAZANIL [Concomitant]
     Dosage: 6 MG, IF NEEDED 3 TO 4.5 MG
  11. TAMBOCOR [Concomitant]
     Dosage: 100 MG, IF  NEEDED AS RESCUE MEDICATION 200-300 MG
  12. TAMSOLUSIN RETARD [Concomitant]
     Indication: PROSTATIC DISORDER

REACTIONS (6)
  - Pathological gambling [Recovering/Resolving]
  - Dermatitis allergic [Recovering/Resolving]
  - Hypersexuality [Recovering/Resolving]
  - Libido increased [Recovered/Resolved with Sequelae]
  - Erectile dysfunction [Unknown]
  - Application site reaction [Unknown]
